FAERS Safety Report 10043942 (Version 1)
Quarter: 2014Q1

REPORT INFORMATION
  Report Type: Spontaneous
  Country: US (occurrence: None)
  Receive Date: 20140327
  Receipt Date: 20140327
  Transmission Date: 20141002
  Serious: Yes (Hospitalization)
  Sender: FDA-Public Use
  Company Number: None

PATIENT
  Age: 63 Year
  Sex: Male
  Weight: 57.15 kg

DRUGS (9)
  1. MIRTAZAPINE [Suspect]
     Indication: DEPRESSED MOOD
     Route: 048
     Dates: start: 20140303, end: 20140305
  2. MIRTAZAPINE [Suspect]
     Indication: DEPRESSED MOOD
     Route: 048
     Dates: start: 20140303, end: 20140305
  3. MIRTAZAPINE [Suspect]
     Indication: DECREASED APPETITE
     Route: 048
     Dates: start: 20140303, end: 20140305
  4. RISPERIDONE [Suspect]
     Route: 048
     Dates: start: 20140101, end: 20140305
  5. MELATONIN [Concomitant]
  6. TRAZODONE [Concomitant]
  7. FOLIC ACID [Concomitant]
  8. PERMETHRIN [Concomitant]
  9. STROMECTOL [Concomitant]

REACTIONS (2)
  - Somnolence [None]
  - Hypothermia [None]
